FAERS Safety Report 6501370-0 (Version None)
Quarter: 2009Q4

REPORT INFORMATION
  Report Type: 
  Country: None (occurrence: None)
  Receive Date: 20091216
  Receipt Date: 20091211
  Transmission Date: 20100525
  Serious: Yes (Hospitalization)
  Sender: FDA-Public Use
  Company Number: US-ASTRAZENECA-2009SE31472

PATIENT
  Age: 16034 Day
  Sex: Male
  Weight: 87.5 kg

DRUGS (2)
  1. SEROQUEL XR [Suspect]
     Indication: INSOMNIA
     Dosage: 100 MG DAILY CONTINUED TO BE INCREASED UNTIL IT REACHED 1200 MG DAILY
     Route: 048
  2. SEROQUEL XR [Suspect]
     Route: 048
     Dates: start: 20090101, end: 20090101

REACTIONS (15)
  - CONTUSION [None]
  - DEMENTIA [None]
  - DIABETES MELLITUS [None]
  - FACIAL BONES FRACTURE [None]
  - HEADACHE [None]
  - HYPERHIDROSIS [None]
  - HYPERTENSION [None]
  - LOSS OF CONSCIOUSNESS [None]
  - LUNG INFECTION [None]
  - RENAL FAILURE [None]
  - TINNITUS [None]
  - TREMOR [None]
  - URINARY INCONTINENCE [None]
  - VISION BLURRED [None]
  - WEIGHT INCREASED [None]
